FAERS Safety Report 9122042 (Version 2)
Quarter: 2013Q1

REPORT INFORMATION
  Report Type: Spontaneous
  Country: US (occurrence: US)
  Receive Date: 20130114
  Receipt Date: 20130118
  Transmission Date: 20140127
  Serious: Yes (Hospitalization, Other)
  Sender: FDA-Public Use
  Company Number: US-RB-048239-13

PATIENT
  Age: 65 Year
  Sex: Female

DRUGS (5)
  1. MUCINEX DM [Suspect]
     Dosage: STARTED AROUND ON 01-DEC-2012 CONSECUTIVELY UNTIL 13-DEC-2012 AND AGAIN RESUMED ON 15-DEC-2012
     Route: 048
     Dates: start: 20121201
  2. MUCINEX DM [Suspect]
     Indication: PRODUCT USED FOR UNKNOWN INDICATION
     Dosage: STARTED AROUND ON 01-DEC-2012 CONSECUTIVELY UNTIL 13-DEC-2012 AND AGAIN RESUMED ON 15-DEC-2012
     Route: 048
     Dates: start: 20121215
  3. MUCINEX DM [Suspect]
  4. MULTIPLE ANTIBIOTICS [Concomitant]
     Indication: PRODUCT USED FOR UNKNOWN INDICATION
     Dosage: TAKING 3 ANTIBIOTICS SINCE THANKSGIVING
  5. ASPRO [Concomitant]
     Indication: ASTHMA
     Dosage: 2 DOSES/DAY

REACTIONS (11)
  - Delirium [Unknown]
  - Confusional state [Not Recovered/Not Resolved]
  - Tremor [Not Recovered/Not Resolved]
  - Asthenia [Not Recovered/Not Resolved]
  - Somnolence [Not Recovered/Not Resolved]
  - Blood potassium decreased [Unknown]
  - Dehydration [Unknown]
  - Urinary tract infection [Unknown]
  - Incorrect drug administration duration [Recovered/Resolved]
  - Fatigue [Not Recovered/Not Resolved]
  - Influenza [None]
